FAERS Safety Report 19793119 (Version 1)
Quarter: 2021Q3

REPORT INFORMATION
  Report Type: Spontaneous
  Country: CN (occurrence: CN)
  Receive Date: 20210906
  Receipt Date: 20210906
  Transmission Date: 20211014
  Serious: Yes (Other)
  Sender: FDA-Public Use
  Company Number: CN-ASTELLAS-2021US032935

PATIENT
  Age: 73 Year
  Sex: Male
  Weight: 60 kg

DRUGS (2)
  1. SOLIFENACIN [Suspect]
     Active Substance: SOLIFENACIN
     Indication: URINARY INCONTINENCE
  2. SOLIFENACIN [Suspect]
     Active Substance: SOLIFENACIN
     Indication: HYPERTONIC BLADDER
     Route: 048
     Dates: start: 20210730, end: 20210802

REACTIONS (3)
  - Pruritus [Recovering/Resolving]
  - Erythema [Recovering/Resolving]
  - Drug eruption [Recovering/Resolving]

NARRATIVE: CASE EVENT DATE: 20210802
